FAERS Safety Report 8282417-0 (Version None)
Quarter: 2012Q2

REPORT INFORMATION
  Report Type: 
  Country: None (occurrence: None)
  Receive Date: 20120413
  Receipt Date: 20120411
  Transmission Date: 20120825
  Serious: Yes (Hospitalization)
  Sender: FDA-Public Use
  Company Number: DE-ABBOTT-12P-062-0924520-00

PATIENT
  Sex: Female

DRUGS (1)
  1. HUMIRA [Suspect]
     Indication: PSORIATIC ARTHROPATHY
     Route: 058
     Dates: start: 20091008

REACTIONS (4)
  - MOTOR DYSFUNCTION [None]
  - DISORIENTATION [None]
  - MEMORY IMPAIRMENT [None]
  - CEREBROVASCULAR ACCIDENT [None]
